FAERS Safety Report 7268777-8 (Version None)
Quarter: 2011Q1

REPORT INFORMATION
  Report Type: 
  Country: None (occurrence: None)
  Receive Date: 20110201
  Receipt Date: 20110124
  Transmission Date: 20110831
  Serious: Yes (Other)
  Sender: FDA-Public Use
  Company Number: PHHO2011ES00849

PATIENT
  Sex: Male
  Weight: 87 kg

DRUGS (1)
  1. CERTICAN [Suspect]
     Indication: RENAL TRANSPLANT
     Dosage: 1.75 MG, BID
     Route: 048
     Dates: start: 20101224, end: 20110105

REACTIONS (3)
  - EYE INFLAMMATION [None]
  - SKIN ULCER [None]
  - CONJUNCTIVITIS [None]
